FAERS Safety Report 7277574-9 (Version None)
Quarter: 2011Q1

REPORT INFORMATION
  Report Type: 
  Country: None (occurrence: None)
  Receive Date: 20110202
  Receipt Date: 20110202
  Transmission Date: 20110831
  Serious: Yes (Other)
  Sender: FDA-Public Use
  Company Number: None

PATIENT
  Age: 47 Year
  Sex: Female
  Weight: 63.5036 kg

DRUGS (1)
  1. NUVARING [Suspect]
     Indication: ORAL CONTRACEPTION
     Dosage: STANDARD RING DOSAGE EVERY 3 WEEKS VAG
     Route: 067
     Dates: start: 20100707, end: 20110124

REACTIONS (9)
  - NAUSEA [None]
  - OEDEMA [None]
  - VULVOVAGINAL DISCOMFORT [None]
  - RETCHING [None]
  - HYPERTENSION [None]
  - HEADACHE [None]
  - FAECES PALE [None]
  - DIARRHOEA [None]
  - VAGINAL INFECTION [None]
